FAERS Safety Report 15988015 (Version 2)
Quarter: 2019Q2

REPORT INFORMATION
  Report Type: Spontaneous
  Country: IT (occurrence: IT)
  Receive Date: 20190220
  Receipt Date: 20190420
  Transmission Date: 20190711
  Serious: Yes (Death, Other)
  Sender: FDA-Public Use
  Company Number: IT-BRISTOL-MYERS SQUIBB COMPANY-BMS-2019-015721

PATIENT
  Age: 82 Year
  Sex: Female

DRUGS (2)
  1. OPDIVO [Suspect]
     Active Substance: NIVOLUMAB
     Indication: METASTATIC MALIGNANT MELANOMA
     Dosage: 480 MG, Q4WK
     Route: 042
  2. OPDIVO [Suspect]
     Active Substance: NIVOLUMAB
     Indication: PRODUCT USED FOR UNKNOWN INDICATION
     Dosage: 100 MILLIGRAM
     Route: 065

REACTIONS (8)
  - Skin lesion [Unknown]
  - Metastases to lymph nodes [Unknown]
  - Death [Fatal]
  - Haemolytic anaemia [Unknown]
  - Ulcer [Unknown]
  - Hypothyroidism [Unknown]
  - Lymphadenopathy [Unknown]
  - Nodular melanoma [Unknown]
